FAERS Safety Report 5121651-5 (Version None)
Quarter: 2006Q4

REPORT INFORMATION
  Report Type: 
  Country: None (occurrence: None)
  Receive Date: 20061006
  Receipt Date: 20051118
  Transmission Date: 20070319
  Serious: Yes (Death)
  Sender: FDA-Public Use
  Company Number: BR-ROCHE-425686

PATIENT
  Age: 14 Year
  Sex: Female

DRUGS (3)
  1. FUZEON [Suspect]
     Indication: HIV INFECTION
     Route: 058
     Dates: start: 20050515, end: 20050913
  2. TENOFOVIR [Concomitant]
     Indication: HIV INFECTION
     Route: 048
  3. UNSPECIFIED DRUG [Concomitant]
     Indication: HIV INFECTION
     Route: 048

REACTIONS (2)
  - CYTOMEGALOVIRUS INFECTION [None]
  - GASTROENTERITIS CRYPTOSPORIDIAL [None]
